FAERS Safety Report 19306571 (Version 1)
Quarter: 2021Q2

REPORT INFORMATION
  Report Type: Spontaneous
  Country: US (occurrence: US)
  Receive Date: 20210525
  Receipt Date: 20210525
  Transmission Date: 20210717
  Serious: No
  Sender: FDA-Public Use
  Company Number: None

PATIENT
  Age: 49 Year
  Sex: Male
  Weight: 101.25 kg

DRUGS (7)
  1. EMGALITY [Suspect]
     Active Substance: GALCANEZUMAB-GNLM
     Indication: MIGRAINE
     Dosage: ?          QUANTITY:1 INJECTION(S);OTHER FREQUENCY:ONCE A MONTH;?
     Route: 030
     Dates: start: 20210323, end: 20210502
  2. VITAMIN D [Concomitant]
     Active Substance: VITAMIN D NOS
  3. STEROIDS [Concomitant]
     Active Substance: UNSPECIFIED INGREDIENT
  4. MULTI VITAMIN [Concomitant]
     Active Substance: VITAMINS
  5. LOSARTAN. [Concomitant]
     Active Substance: LOSARTAN
  6. LEXAPRO [Concomitant]
     Active Substance: ESCITALOPRAM OXALATE
  7. VITAMIN B [Concomitant]
     Active Substance: VITAMIN B

REACTIONS (5)
  - Diarrhoea [None]
  - Malaise [None]
  - Fatigue [None]
  - Nausea [None]
  - Bone pain [None]

NARRATIVE: CASE EVENT DATE: 20210325
